FAERS Safety Report 4514549-4 (Version None)
Quarter: 2004Q4

REPORT INFORMATION
  Report Type: 
  Country: None (occurrence: None)
  Receive Date: 20041126
  Receipt Date: 20041115
  Transmission Date: 20050328
  Serious: Yes (Hospitalization)
  Sender: FDA-Public Use
  Company Number: SUSI-2004-00763

PATIENT
  Age: 23 Year
  Sex: Female

DRUGS (3)
  1. PENTASA [Suspect]
     Indication: COLITIS ULCERATIVE
     Dosage: 500 MG, 3X/DAY: TID, ORAL
     Route: 048
     Dates: start: 20030922, end: 20030925
  2. SULFASALAZINE [Suspect]
     Indication: COLITIS ULCERATIVE
     Dosage: 3 G, ORAL
     Route: 048
     Dates: start: 20030903, end: 20030919
  3. CEFCAPENE PIVOXIL HYDROCHLORIDE [Concomitant]

REACTIONS (6)
  - ALANINE AMINOTRANSFERASE INCREASED [None]
  - ASPARTATE AMINOTRANSFERASE INCREASED [None]
  - BLOOD ALKALINE PHOSPHATASE INCREASED [None]
  - DRUG HYPERSENSITIVITY [None]
  - LIVER DISORDER [None]
  - LYMPHOCYTE MORPHOLOGY ABNORMAL [None]
